FAERS Safety Report 6211775-3 (Version None)
Quarter: 2009Q2

REPORT INFORMATION
  Report Type: 
  Country: None (occurrence: None)
  Receive Date: 20090528
  Receipt Date: 20090515
  Transmission Date: 20091009
  Serious: Yes (Hospitalization)
  Sender: FDA-Public Use
  Company Number: SP1200900139

PATIENT
  Sex: Female

DRUGS (2)
  1. AMITIZA [Suspect]
     Dosage: 24 MCG, BID, ORAL
     Route: 048
  2. UNKNOWN MEDICATIONS [Concomitant]

REACTIONS (1)
  - PANCREATITIS [None]
